FAERS Safety Report 6145385-3 (Version None)
Quarter: 2009Q2

REPORT INFORMATION
  Report Type: 
  Country: None (occurrence: None)
  Receive Date: 20090402
  Receipt Date: 20090318
  Transmission Date: 20091009
  Serious: Yes (Death)
  Sender: FDA-Public Use
  Company Number: 2009S1004750

PATIENT
  Age: 58 Year
  Sex: Male

DRUGS (8)
  1. ZYPREXA [Suspect]
     Dosage: 15 MG; TWICE A DAY; ORAL
     Route: 048
  2. AMITRIPTYLINE HCL [Suspect]
  3. FLUOXETINE [Suspect]
  4. ALPRAZOLAM [Concomitant]
  5. DEPAKOTE [Concomitant]
  6. FAMOTIDINE [Concomitant]
  7. HYDROCODONE BITARTRATE [Concomitant]
  8. AUGMENTIN '125' [Concomitant]

REACTIONS (7)
  - ACCIDENTAL DEATH [None]
  - ALCOHOL USE [None]
  - CORONARY ARTERY DISEASE [None]
  - DRUG TOXICITY [None]
  - FOREIGN BODY TRAUMA [None]
  - HEPATIC CIRRHOSIS [None]
  - RIB FRACTURE [None]
